FAERS Safety Report 7107982-8 (Version None)
Quarter: 2010Q4

REPORT INFORMATION
  Report Type: 
  Country: None (occurrence: None)
  Receive Date: 20101105
  Receipt Date: 20101027
  Transmission Date: 20110411
  Serious: Yes (Other)
  Sender: FDA-Public Use
  Company Number: 2010SP057478

PATIENT
  Age: 27 Year
  Sex: Female
  Weight: 95.2554 kg

DRUGS (2)
  1. IMPLANON [Suspect]
     Indication: CONTRACEPTION
     Dosage: 68 MG;SBDE
     Route: 059
     Dates: start: 20090701
  2. XANAX [Concomitant]

REACTIONS (6)
  - CYST REMOVAL [None]
  - FEELING COLD [None]
  - HOT FLUSH [None]
  - IATROGENIC INJURY [None]
  - NAUSEA [None]
  - PERIPHERAL NERVE INJURY [None]
